FAERS Safety Report 7964194-3 (Version None)
Quarter: 2011Q4

REPORT INFORMATION
  Report Type: 
  Country: None (occurrence: None)
  Receive Date: 20111206
  Receipt Date: 20111123
  Transmission Date: 20120403
  Serious: Yes (Death, Life-Threatening, Hospitalization, Other)
  Sender: FDA-Public Use
  Company Number: 2011MA016788

PATIENT
  Sex: Female

DRUGS (2)
  1. PAREGORIC LIQUID USP (ALPHARMA) (PAREGORIC) [Suspect]
     Indication: ANALGESIC THERAPY
     Dosage: ;1X;PCA
  2. FENTANYL [Suspect]
     Indication: ANALGESIC THERAPY
     Dosage: ;1X;EPIDURAL
     Route: 008

REACTIONS (4)
  - UPPER AIRWAY OBSTRUCTION [None]
  - UNRESPONSIVE TO STIMULI [None]
  - DRUG LEVEL INCREASED [None]
  - TOXICITY TO VARIOUS AGENTS [None]
